FAERS Safety Report 14169432 (Version 1)
Quarter: 2017Q4

REPORT INFORMATION
  Report Type: Spontaneous
  Country: US (occurrence: US)
  Receive Date: 20171107
  Receipt Date: 20171107
  Transmission Date: 20180321
  Serious: No
  Sender: FDA-Public Use
  Company Number: None

PATIENT
  Age: 33 Year
  Sex: Male
  Weight: 78.1 kg

DRUGS (3)
  1. TRIUMEQ [Suspect]
     Active Substance: ABACAVIR SULFATE\DOLUTEGRAVIR SODIUM\LAMIVUDINE
     Indication: HIV INFECTION
     Route: 048
     Dates: start: 20170908, end: 20171012
  2. BENZATHINE [Concomitant]
  3. GENVOYA [Suspect]
     Active Substance: COBICISTAT\ELVITEGRAVIR\EMTRICITABINE\TENOFOVIR ALAFENAMIDE FUMARATE
     Indication: HIV INFECTION
     Route: 048
     Dates: start: 20171013, end: 20171015

REACTIONS (6)
  - Nausea [None]
  - Fatigue [None]
  - Drug eruption [None]
  - Drug intolerance [None]
  - Therapy change [None]
  - Therapy cessation [None]

NARRATIVE: CASE EVENT DATE: 20171015
